FAERS Safety Report 13006897 (Version 2)
Quarter: 2017Q2

REPORT INFORMATION
  Report Type: Report from Study
  Country: US (occurrence: US)
  Receive Date: 20161207
  Receipt Date: 20170405
  Transmission Date: 20170830
  Serious: Yes (Hospitalization)
  Sender: FDA-Public Use
  Company Number: US-VERTEX PHARMACEUTICALS-2016-006733

PATIENT
  Age: 11 Year
  Sex: Male

DRUGS (30)
  1. CITALOPRAM [Concomitant]
     Active Substance: CITALOPRAM HYDROBROMIDE
     Dosage: GIVE 10 MG BY G TUBE
  2. CREON [Concomitant]
     Active Substance: PANCRELIPASE AMYLASE\PANCRELIPASE LIPASE\PANCRELIPASE PROTEASE
  3. GLUCAGON. [Concomitant]
     Active Substance: GLUCAGON
  4. MONTELUKAST [Concomitant]
     Active Substance: MONTELUKAST SODIUM
  5. OMEPRAZOLE. [Concomitant]
     Active Substance: OMEPRAZOLE
  6. PHYTONADIONE. [Concomitant]
     Active Substance: PHYTONADIONE
  7. PEPTAMEN JUNIOR [Concomitant]
     Active Substance: DIETARY SUPPLEMENT
  8. DIPHENHYDRAMINE. [Concomitant]
     Active Substance: DIPHENHYDRAMINE
  9. ORKAMBI [Suspect]
     Active Substance: IVACAFTOR\LUMACAFTOR
     Dosage: AT A LOWER DOSE
     Route: 048
     Dates: start: 201612
  10. SPIRONOLACTONE. [Concomitant]
     Active Substance: SPIRONOLACTONE
     Dosage: GIVE 1.25 MG BY MOUTH
     Route: 048
  11. CHLOROTHIAZIDE. [Concomitant]
     Active Substance: CHLOROTHIAZIDE
  12. SIMETHICONE (DIMETHICONE) [Concomitant]
     Active Substance: DIMETHICONE
  13. LEVALBUTEROL. [Concomitant]
     Active Substance: LEVALBUTEROL
  14. POTASSIUM CHLORIDE. [Concomitant]
     Active Substance: POTASSIUM CHLORIDE
  15. PULMOZYME [Concomitant]
     Active Substance: DORNASE ALFA
  16. TOBRAMYCIN. [Concomitant]
     Active Substance: TOBRAMYCIN
  17. AZITHROMYCIN ANHYDROUS. [Concomitant]
     Active Substance: AZITHROMYCIN ANHYDROUS
  18. TRIAMCINOLONE ACETONIDE. [Concomitant]
     Active Substance: TRIAMCINOLONE ACETONIDE
  19. MULTIVITAMINS [Concomitant]
     Active Substance: VITAMINS
  20. MUPIROCIN. [Concomitant]
     Active Substance: MUPIROCIN
  21. POLYETHYLENE GLYCOL [Concomitant]
     Active Substance: POLYETHYLENE GLYCOLS
  22. FUROSEMIDE. [Concomitant]
     Active Substance: FUROSEMIDE
     Dosage: 1 ML BY MOUTH EVERY 24 HOURS
     Route: 048
  23. MELATONIN [Concomitant]
     Active Substance: MELATONIN
  24. PROBIOTIC [Concomitant]
     Active Substance: PROBIOTICS NOS
  25. SODIUM CHLORIDE. [Concomitant]
     Active Substance: SODIUM CHLORIDE
     Dosage: 3%
  26. URSODIOL. [Concomitant]
     Active Substance: URSODIOL
  27. ZYRTEC [Concomitant]
     Active Substance: CETIRIZINE HYDROCHLORIDE
  28. ORKAMBI [Suspect]
     Active Substance: IVACAFTOR\LUMACAFTOR
     Indication: CYSTIC FIBROSIS
     Dosage: 1 DF, BID
     Route: 048
     Dates: start: 20161120, end: 2016
  29. FLOVENT HFA [Concomitant]
     Active Substance: FLUTICASONE PROPIONATE
  30. SODIUM CHLORIDE. [Concomitant]
     Active Substance: SODIUM CHLORIDE
     Dosage: 4%

REACTIONS (2)
  - Respiratory failure [Unknown]
  - Infective pulmonary exacerbation of cystic fibrosis [Unknown]

NARRATIVE: CASE EVENT DATE: 201611
